FAERS Safety Report 10378910 (Version 3)
Quarter: 2016Q2

REPORT INFORMATION
  Report Type: Spontaneous
  Country: FR (occurrence: FR)
  Receive Date: 20140812
  Receipt Date: 20160411
  Transmission Date: 20160815
  Serious: Yes (Life-Threatening, Hospitalization, Other)
  Sender: FDA-Public Use
  Company Number: FR-BRISTOL-MYERS SQUIBB COMPANY-21264767

PATIENT
  Sex: Female

DRUGS (1)
  1. COUMADIN [Suspect]
     Active Substance: WARFARIN SODIUM
     Indication: THROMBOPHLEBITIS
     Dosage: 2MG
     Route: 048
     Dates: start: 2011

REACTIONS (6)
  - Shock haemorrhagic [Unknown]
  - Sepsis [Unknown]
  - Arthritis bacterial [Unknown]
  - Intra-abdominal haematoma [Recovered/Resolved]
  - Ecchymosis [Unknown]
  - Anaemia [Recovered/Resolved]

NARRATIVE: CASE EVENT DATE: 2014
